FAERS Safety Report 6730607-8 (Version None)
Quarter: 2010Q2

REPORT INFORMATION
  Report Type: 
  Country: None (occurrence: None)
  Receive Date: 20100514
  Receipt Date: 20100505
  Transmission Date: 20101027
  Serious: Yes (Hospitalization, Other)
  Sender: FDA-Public Use
  Company Number: VISP-UK-1001S-0040

PATIENT
  Age: 73 Year
  Sex: Male

DRUGS (16)
  1. VISIPAQUE [Suspect]
     Indication: CORONARY ARTERY DISEASE
     Dosage: SINGLE DOSE, I.A.
     Route: 013
     Dates: start: 20091214, end: 20091214
  2. VISIPAQUE [Suspect]
  3. LIDOCAINE 2% [Concomitant]
  4. ASPIRIN [Concomitant]
  5. DILTIAZEM HYDROCHLORIDE [Concomitant]
  6. CARBOCISTEINE [Concomitant]
  7. CLOPIDOGREL [Concomitant]
  8. DIAZEPAM [Concomitant]
  9. ISOSORBIDE DINITRATE [Concomitant]
  10. PERINDOPRIL [Concomitant]
  11. RANITIDINE [Concomitant]
  12. SALBUTAMOL [Concomitant]
  13. FLUTICASONE PROPIONATE [Concomitant]
  14. SALMETEROL XINAFOATE [Concomitant]
  15. TIOTROPIUM BROMIDE [Concomitant]
  16. HEPARIN SODIUM [Suspect]

REACTIONS (6)
  - CEREBELLAR ATAXIA [None]
  - CEREBROVASCULAR ACCIDENT [None]
  - CONTRAST MEDIA REACTION [None]
  - DIPLOPIA [None]
  - OPHTHALMOPLEGIA [None]
  - VITH NERVE PARALYSIS [None]
